FAERS Safety Report 10202681 (Version 1)
Quarter: 2014Q2

REPORT INFORMATION
  Report Type: Report from Study
  Country: PL (occurrence: FR)
  Receive Date: 20140528
  Receipt Date: 20140528
  Transmission Date: 20141212
  Serious: Yes (Other)
  Sender: FDA-Public Use
  Company Number: PL-BAYER-2014-075938

PATIENT
  Sex: 0

DRUGS (2)
  1. PARACETAMOL [Suspect]
  2. ACETYLSALICYLIC ACID (} 100 MG) [Suspect]

REACTIONS (7)
  - Angioedema [None]
  - Conjunctivitis [None]
  - Dyspnoea [None]
  - Wheezing [None]
  - Urticaria [None]
  - Angioedema [None]
  - Drug hypersensitivity [None]
